FAERS Safety Report 7810506-0 (Version None)
Quarter: 2011Q4

REPORT INFORMATION
  Report Type: 
  Country: None (occurrence: None)
  Receive Date: 20111012
  Receipt Date: 20111007
  Transmission Date: 20120403
  Serious: Yes (Death, Hospitalization)
  Sender: FDA-Public Use
  Company Number: US-BRISTOL-MYERS SQUIBB COMPANY-16144313

PATIENT
  Sex: Female
  Weight: 65 kg

DRUGS (2)
  1. CISPLATIN [Suspect]
     Indication: LARYNGEAL CANCER
     Dosage: LAST ADMINISTERED DATE:06JUL2011
     Dates: start: 20080804
  2. ERBITUX [Suspect]
     Indication: LARYNGEAL CANCER
     Dosage: LAST ADMINISTERED DT:04AUG2008
     Dates: start: 20080804

REACTIONS (4)
  - PSYCHOTIC DISORDER [None]
  - RENAL FAILURE ACUTE [None]
  - EMBOLISM [None]
  - ACUTE RESPIRATORY DISTRESS SYNDROME [None]
